FAERS Safety Report 9537361 (Version 2)
Quarter: 2013Q4

REPORT INFORMATION
  Report Type: Spontaneous
  Country: US (occurrence: US)
  Receive Date: 20130919
  Receipt Date: 20131017
  Transmission Date: 20140711
  Serious: Yes (Hospitalization, Other)
  Sender: FDA-Public Use
  Company Number: US-009507513-1309USA003909

PATIENT
  Age: 85 Year
  Sex: Female

DRUGS (3)
  1. DECADRON [Suspect]
     Indication: PRODUCT USED FOR UNKNOWN INDICATION
     Dosage: UNKNOWN
     Dates: end: 20130816
  2. REVLIMID [Suspect]
     Indication: PLASMA CELL MYELOMA
     Dosage: 25 MG, QD (DAILY)
     Route: 048
     Dates: start: 20130731
  3. REVLIMID [Suspect]
     Dosage: 25 MG, QOD (EVERY OTHER DAY)
     Route: 048
     Dates: start: 20130802, end: 20130816

REACTIONS (8)
  - Somnolence [Recovered/Resolved]
  - Blood glucose increased [Recovered/Resolved]
  - Aphagia [Recovered/Resolved]
  - Muscular weakness [Recovered/Resolved]
  - Candida infection [Recovered/Resolved]
  - Decreased appetite [Recovered/Resolved]
  - Abasia [Recovered/Resolved]
  - Fatigue [Unknown]
